FAERS Safety Report 20873430 (Version 1)
Quarter: 2022Q2

REPORT INFORMATION
  Report Type: Spontaneous
  Country: CN (occurrence: None)
  Receive Date: 20220525
  Receipt Date: 20220525
  Transmission Date: 20220721
  Serious: Yes (Hospitalization)
  Sender: FDA-Public Use
  Company Number: CN-Eisai Medical Research-EC-2022-115274

PATIENT
  Age: 39 Year
  Sex: Male
  Weight: 71 kg

DRUGS (2)
  1. LENVATINIB [Suspect]
     Active Substance: LENVATINIB
     Indication: Hepatic cancer metastatic
     Route: 048
  2. TORIPALIMAB [Suspect]
     Active Substance: TORIPALIMAB
     Indication: Hepatic cancer metastatic
     Route: 042

REACTIONS (1)
  - Toxic epidermal necrolysis [Recovered/Resolved]
